FAERS Safety Report 12808747 (Version 1)
Quarter: 2016Q4

REPORT INFORMATION
  Report Type: Spontaneous
  Country: US (occurrence: US)
  Receive Date: 20161004
  Receipt Date: 20161004
  Transmission Date: 20170207
  Serious: No
  Sender: FDA-Public Use
  Company Number: US-GILEAD-2016-0236042

PATIENT
  Sex: Male

DRUGS (2)
  1. DACLATASVIR DIHYDROCHLORIDE [Concomitant]
     Active Substance: DACLATASVIR DIHYDROCHLORIDE
     Route: 048
  2. SOFOSBUVIR [Suspect]
     Active Substance: SOFOSBUVIR
     Indication: PRODUCT USED FOR UNKNOWN INDICATION
     Route: 048

REACTIONS (7)
  - Nausea [Recovered/Resolved]
  - Insomnia [Unknown]
  - Constipation [Unknown]
  - Weight increased [Unknown]
  - Fatigue [Unknown]
  - Headache [Recovered/Resolved]
  - Arthralgia [Recovered/Resolved]
